FAERS Safety Report 6485060-9 (Version None)
Quarter: 2009Q4

REPORT INFORMATION
  Report Type: 
  Country: None (occurrence: None)
  Receive Date: 20091209
  Receipt Date: 20090610
  Transmission Date: 20100525
  Serious: No
  Sender: FDA-Public Use
  Company Number: US-AMGEN-KDL351122

PATIENT
  Sex: Female

DRUGS (2)
  1. ENBREL [Suspect]
     Indication: JUVENILE ARTHRITIS
     Route: 058
  2. METHOTREXATE [Concomitant]

REACTIONS (4)
  - BLOOD COUNT ABNORMAL [None]
  - HEPATIC ENZYME INCREASED [None]
  - RASH GENERALISED [None]
  - THERAPEUTIC RESPONSE DECREASED [None]
